FAERS Safety Report 9306600 (Version 2)
Quarter: 2013Q2

REPORT INFORMATION
  Report Type: Spontaneous
  Country: ES (occurrence: ES)
  Receive Date: 20130523
  Receipt Date: 20130530
  Transmission Date: 20140414
  Serious: Yes (Life-Threatening)
  Sender: FDA-Public Use
  Company Number: ES-TEVA-407086USA

PATIENT
  Age: 84 Year
  Sex: Male
  Weight: 66 kg

DRUGS (3)
  1. BENDAMUSTINE [Suspect]
     Indication: CHRONIC LYMPHOCYTIC LEUKAEMIA
     Dosage: 2 CYCLES
     Route: 042
     Dates: start: 20130131, end: 20130304
  2. SULFAMETHOXAZOLE W/TRIMETHOPRIM [Concomitant]
     Indication: PROPHYLAXIS
     Dosage: SULFAMETHOXAZOLE/TRIMETHOPRIM TIW
     Dates: start: 20130130
  3. ACYCLOVIR [Concomitant]
     Indication: PROPHYLAXIS
     Route: 048
     Dates: start: 20130130

REACTIONS (1)
  - Autoimmune haemolytic anaemia [Recovering/Resolving]
